FAERS Safety Report 8248186-5 (Version None)
Quarter: 2012Q1

REPORT INFORMATION
  Report Type: 
  Country: None (occurrence: None)
  Receive Date: 20120330
  Receipt Date: 20120323
  Transmission Date: 20120608
  Serious: Yes (Other)
  Sender: FDA-Public Use
  Company Number: US-PFIZER INC-2012077078

PATIENT
  Sex: Female

DRUGS (27)
  1. NITROSTAT [Concomitant]
     Indication: CHEST PAIN
     Dosage: 0.4 MG, 1 TAB(S) SUBLINGUALLY EVERY 5 MINUTES AS NEEDED FOR CHEST PAIN.
     Route: 060
  2. SYMLIN [Concomitant]
     Dosage: 60 UG, 2X/DAY
     Route: 058
  3. LIVALO [Concomitant]
     Dosage: 2 MG, 1X/DAY
     Route: 048
  4. LANTUS [Concomitant]
     Dosage: 84 IU, 2X/DAY
     Route: 058
  5. DIVALPROEX SODIUM [Concomitant]
     Dosage: 500 MG, 1X/DAY
     Route: 048
  6. MAXALT [Concomitant]
     Indication: HEADACHE
     Dosage: 10 MG, ONE TAB AT ONSET OF HEADACHE. MAY REPEAT IN 2 HOURS IT NEEDED. MAX 3 TABS IN 24 HOURS.
     Route: 048
  7. KLOR-CON [Concomitant]
     Dosage: 10 MEQ, DAILY AFTER MEALS.
     Route: 048
  8. LOVAZA [Concomitant]
     Dosage: 2000 MG, 2X/DAY
     Route: 048
  9. NEURONTIN [Concomitant]
     Dosage: 600 MG, 2 TIMES DAILY
     Route: 048
  10. TOPAMAX [Concomitant]
     Dosage: 50 MG, 2X/DAY
     Route: 048
  11. NOVOLOG [Concomitant]
     Dosage: 60 IU, DAILY
     Route: 058
  12. DEPO-PROVERA [Suspect]
     Indication: CONTRACEPTION
     Dosage: 150 MG/ML, ONCE
     Route: 030
  13. GLUCOTROL [Concomitant]
     Dosage: 10 MG, 2X/DAY
     Route: 048
  14. NIASPAN [Concomitant]
     Dosage: 1000 MG, DAILY
     Route: 048
  15. METOPROLOL SUCCINATE [Concomitant]
     Dosage: 25 MG, ONCE A DAY
     Route: 048
  16. PAROXETINE [Concomitant]
     Dosage: 1.5 DF ONCE A DAY
     Route: 048
  17. GLIPIZIDE [Concomitant]
     Dosage: 10 MG, 2X/DAY
     Route: 048
  18. MIRTAZAPINE [Concomitant]
     Dosage: 30 MG, 1X/DAY
     Route: 048
  19. VITAMIN D [Concomitant]
     Dosage: 50000 IU, WEEKLY
     Route: 048
  20. LISINOPRIL [Concomitant]
     Dosage: 20 MG, ONCE A DAY
     Route: 048
  21. DEXLANSOPRAZOLE [Concomitant]
     Dosage: 60 MG, 1X/DAY
     Route: 048
  22. PROMETHAZINE [Concomitant]
     Indication: NAUSEA
     Dosage: 25 MG, DAILY AS NEEDED
     Route: 048
  23. ACTOS [Concomitant]
     Dosage: 45 MG, 1X/DAY
     Route: 048
  24. ACETYLSALICYLIC ACID [Concomitant]
     Dosage: 325 MG, 1X/DAY
     Route: 048
  25. AMITRIPTYLINE [Concomitant]
     Dosage: 25 MG, 1X/DAY (AT BEDTIME)
     Route: 048
  26. FUROSEMIDE [Concomitant]
     Dosage: 40 MG, 1X/DAY
     Route: 048
  27. PROMETHAZINE [Concomitant]
     Indication: VOMITING

REACTIONS (1)
  - CONVULSION [None]
